FAERS Safety Report 15798782 (Version 1)
Quarter: 2019Q1

REPORT INFORMATION
  Report Type: Spontaneous
  Country: US (occurrence: US)
  Receive Date: 20190108
  Receipt Date: 20190108
  Transmission Date: 20190417
  Serious: No
  Sender: FDA-Public Use
  Company Number: US-SA-2019SA004450

PATIENT
  Age: 60 Year
  Sex: Female

DRUGS (1)
  1. DUPIXENT [Suspect]
     Active Substance: DUPILUMAB
     Indication: PRODUCT USED FOR UNKNOWN INDICATION
     Dosage: 300 MG, QOW
     Route: 058
     Dates: start: 20180918

REACTIONS (7)
  - Chills [Unknown]
  - Constipation [Unknown]
  - Pyrexia [Unknown]
  - Cough [Unknown]
  - Vision blurred [Unknown]
  - Influenza [Unknown]
  - Dry eye [Unknown]

NARRATIVE: CASE EVENT DATE: 201812
